FAERS Safety Report 4852594-X (Version None)
Quarter: 2005Q4

REPORT INFORMATION
  Report Type: 
  Country: None (occurrence: None)
  Receive Date: 20051125
  Receipt Date: 20050806
  Transmission Date: 20060501
  Serious: Yes (Other)
  Sender: FDA-Public Use
  Company Number: 2005100809

PATIENT
  Sex: Female
  Weight: 112.4921 kg

DRUGS (11)
  1. TIKOSYN [Suspect]
     Indication: ATRIAL FIBRILLATION
     Dosage: 250 MG, ORAL
     Route: 048
     Dates: start: 20050101
  2. VERAPAMIL HYDROCHLORIDE [Suspect]
     Indication: ILL-DEFINED DISORDER
  3. LOPRESSOR [Concomitant]
  4. LASIX [Concomitant]
  5. LISINOPRIL [Concomitant]
  6. LIPITOR [Concomitant]
  7. FELDENE [Concomitant]
  8. ASPIRIN [Concomitant]
  9. COUMADIN [Concomitant]
  10. KLOR-CON [Concomitant]
  11. SENNA (SENNA) [Concomitant]

REACTIONS (1)
  - BLOOD PRESSURE INCREASED [None]
